FAERS Safety Report 9805814 (Version 2)
Quarter: 2014Q1

REPORT INFORMATION
  Report Type: Spontaneous
  Country: US (occurrence: US)
  Receive Date: 20140109
  Receipt Date: 20140109
  Transmission Date: 20141002
  Serious: Yes (Hospitalization)
  Sender: FDA-Public Use
  Company Number: US-B.I. PHARMACEUTICALS,INC./RIDGEFIELD-2013-BI-22006BP

PATIENT
  Age: 85 Year
  Sex: Male

DRUGS (17)
  1. PRADAXA [Suspect]
     Indication: ATRIAL FIBRILLATION
     Dosage: 75 MG
     Dates: start: 20120213, end: 20121230
  2. FLOMAX [Concomitant]
     Indication: BENIGN PROSTATIC HYPERPLASIA
  3. CELEXA [Concomitant]
     Indication: DEPRESSION
  4. PRANDIN [Concomitant]
     Dosage: 1.5 MG
  5. LIDODERM [Concomitant]
  6. ISRADIPINE [Concomitant]
     Dosage: 10 MG
  7. ENALAPRIL [Concomitant]
     Dosage: 2.5 MG
  8. POTASSIUM [Concomitant]
     Dosage: 10 MEQ
     Route: 048
  9. LASIX [Concomitant]
  10. TYLENOL [Concomitant]
  11. PHENERGAN [Concomitant]
     Indication: NAUSEA
  12. ATENOLOL [Concomitant]
     Dosage: 100 MG
  13. ALLOPURINOL [Concomitant]
     Dosage: 300 MG
  14. TIZANIDINE [Concomitant]
     Dosage: 8 MG
     Route: 048
  15. PRAVASTATIN [Concomitant]
  16. ARICEPT [Concomitant]
     Indication: DEMENTIA
     Dosage: 10 MG
  17. ZAROXOLYN [Concomitant]
     Dosage: 10 MG

REACTIONS (6)
  - Haematuria [Unknown]
  - Haemorrhagic anaemia [Unknown]
  - Coagulopathy [Unknown]
  - Renal failure acute [Recovered/Resolved]
  - Urinary tract infection [Unknown]
  - Occult blood positive [Unknown]
